FAERS Safety Report 9198630 (Version 3)
Quarter: 2013Q3

REPORT INFORMATION
  Report Type: Spontaneous
  Country: JP (occurrence: JP)
  Receive Date: 20130329
  Receipt Date: 20130717
  Transmission Date: 20140515
  Serious: Yes (Disabling)
  Sender: FDA-Public Use
  Company Number: JP-JNJFOC-20130314923

PATIENT
  Age: 79 Year
  Sex: Male
  Weight: 66 kg

DRUGS (12)
  1. XARELTO [Suspect]
     Indication: CEREBROVASCULAR ACCIDENT PROPHYLAXIS
     Route: 048
     Dates: start: 20130404, end: 20130418
  2. XARELTO [Suspect]
     Indication: CEREBROVASCULAR ACCIDENT PROPHYLAXIS
     Route: 048
     Dates: start: 20130305, end: 2013
  3. XARELTO [Suspect]
     Indication: ATRIAL FIBRILLATION
     Route: 048
     Dates: start: 20130404, end: 20130418
  4. XARELTO [Suspect]
     Indication: ATRIAL FIBRILLATION
     Route: 048
     Dates: start: 20130305, end: 2013
  5. PLAVIX [Concomitant]
     Indication: CEREBROVASCULAR ACCIDENT PROPHYLAXIS
     Route: 048
  6. ADALAT CR [Concomitant]
     Indication: HYPERTENSION
     Route: 048
  7. BLOPRESS [Concomitant]
     Indication: HYPERTENSION
     Route: 048
  8. LANSOPRAZOLE [Concomitant]
     Indication: GASTRITIS
     Route: 048
  9. LUPRAC [Concomitant]
     Indication: OEDEMA DUE TO CARDIAC DISEASE
     Route: 048
  10. ALESION [Concomitant]
     Route: 048
  11. LOXOPROFEN SODIUM [Concomitant]
     Route: 048
  12. LENDORMIN [Concomitant]
     Indication: INSOMNIA
     Route: 048

REACTIONS (2)
  - Embolic stroke [Recovered/Resolved with Sequelae]
  - Drug ineffective [Unknown]
